FAERS Safety Report 4796318-3 (Version None)
Quarter: 2005Q4

REPORT INFORMATION
  Report Type: 
  Country: None (occurrence: None)
  Receive Date: 20051007
  Receipt Date: 20000922
  Transmission Date: 20060501
  Serious: Yes (Hospitalization)
  Sender: FDA-Public Use
  Company Number: 2005100006

PATIENT
  Age: 46 Year
  Sex: Male

DRUGS (1)
  1. ASTELIN [Suspect]

REACTIONS (1)
  - CARDIAC ARREST [None]
